FAERS Safety Report 20441660 (Version 1)
Quarter: 2022Q1

REPORT INFORMATION
  Report Type: Spontaneous
  Country: TN (occurrence: TN)
  Receive Date: 20220208
  Receipt Date: 20220208
  Transmission Date: 20220423
  Serious: Yes (Life-Threatening, Hospitalization, Other)
  Sender: FDA-Public Use
  Company Number: TN-INGENUS PHARMACEUTICALS, LLC-2022INF000004

PATIENT
  Age: 55 Year
  Sex: Female

DRUGS (3)
  1. DOCETAXEL [Suspect]
     Active Substance: DOCETAXEL
     Indication: Breast cancer
     Dosage: 100 MILLIGRAM/SQ. METER
     Route: 065
     Dates: start: 202109
  2. DESLORATADINE [Concomitant]
     Active Substance: DESLORATADINE
     Indication: Premedication
     Dosage: 5 MILLIGRAM
     Route: 065
  3. DEXAMETHASONE [Concomitant]
     Active Substance: DEXAMETHASONE
     Indication: Premedication
     Dosage: 8 MILLIGRAM
     Route: 065

REACTIONS (1)
  - Pancreatitis necrotising [Recovering/Resolving]
